FAERS Safety Report 4747558-0 (Version None)
Quarter: 2005Q3

REPORT INFORMATION
  Report Type: 
  Country: None (occurrence: None)
  Receive Date: 20050817
  Receipt Date: 20050817
  Transmission Date: 20060218
  Serious: Yes (Other)
  Sender: FDA-Public Use
  Company Number: None

PATIENT
  Age: 38 Year
  Sex: Female
  Weight: 83.9154 kg

DRUGS (1)
  1. CITALOPRAM 20 MG [Suspect]
     Indication: DEPRESSION
     Dosage: 20 MG 1 DAILY ORAL
     Route: 048
     Dates: start: 20050610, end: 20050816

REACTIONS (2)
  - ABORTION SPONTANEOUS [None]
  - DRUG EXPOSURE DURING PREGNANCY [None]
